FAERS Safety Report 6620081-4 (Version None)
Quarter: 2010Q1

REPORT INFORMATION
  Report Type: 
  Country: None (occurrence: None)
  Receive Date: 20100309
  Receipt Date: 20100227
  Transmission Date: 20100710
  Serious: Yes (Other)
  Sender: FDA-Public Use
  Company Number: US-ABBOTT-10P-163-0629419-00

PATIENT
  Sex: Male

DRUGS (1)
  1. NIMBEX [Suspect]
     Indication: ANAESTHESIA

REACTIONS (1)
  - CIRCULATORY COLLAPSE [None]
